FAERS Safety Report 25102799 (Version 1)
Quarter: 2025Q1

REPORT INFORMATION
  Report Type: Spontaneous
  Country: US (occurrence: US)
  Receive Date: 20250321
  Receipt Date: 20250321
  Transmission Date: 20250408
  Serious: Yes (Hospitalization, Other)
  Sender: APOTEX
  Company Number: US-APOTEX-2025AP003396

PATIENT
  Age: 62 Year
  Sex: Male

DRUGS (1)
  1. AMOXICILLIN\CLAVULANIC ACID [Suspect]
     Active Substance: AMOXICILLIN\CLAVULANIC ACID
     Indication: Sinusitis
     Dosage: (875-125 MILLIGRAM), BID
     Route: 065

REACTIONS (4)
  - Renal failure [Unknown]
  - Hepatic failure [Unknown]
  - Drug-induced liver injury [Recovering/Resolving]
  - Tubulointerstitial nephritis [Recovering/Resolving]
